FAERS Safety Report 6833624-2 (Version None)
Quarter: 2010Q3

REPORT INFORMATION
  Report Type: 
  Country: None (occurrence: None)
  Receive Date: 20100712
  Receipt Date: 20070327
  Transmission Date: 20110219
  Serious: No
  Sender: FDA-Public Use
  Company Number: US-PFIZER INC-2007026321

PATIENT
  Age: 47 Year
  Sex: Female

DRUGS (7)
  1. CHANTIX [Suspect]
     Indication: SMOKING CESSATION THERAPY
     Dates: start: 20070301
  2. XANAX [Concomitant]
     Indication: ANXIETY
  3. XANAX [Concomitant]
     Indication: PANIC ATTACK
  4. ZYRTEC [Concomitant]
  5. FLONASE [Concomitant]
  6. ACETYLSALICYLIC ACID [Concomitant]
  7. EFFEXOR [Concomitant]

REACTIONS (7)
  - ABNORMAL DREAMS [None]
  - ANXIETY [None]
  - CONSTIPATION [None]
  - FEELING HOT [None]
  - HOT FLUSH [None]
  - HYPERHIDROSIS [None]
  - NAUSEA [None]
